FAERS Safety Report 24550745 (Version 1)
Quarter: 2024Q4

REPORT INFORMATION
  Report Type: Spontaneous
  Country: IL (occurrence: IL)
  Receive Date: 20241025
  Receipt Date: 20241025
  Transmission Date: 20250115
  Serious: Yes (Death)
  Sender: JAZZ
  Company Number: IL-JAZZ PHARMACEUTICALS-2024-IL-015668

PATIENT
  Age: 13 Year
  Sex: Male

DRUGS (1)
  1. DEFITELIO [Suspect]
     Active Substance: DEFIBROTIDE SODIUM
     Indication: Venoocclusive disease
     Dosage: UNK

REACTIONS (1)
  - Infection [Fatal]
